FAERS Safety Report 8272053-4 (Version None)
Quarter: 2012Q2

REPORT INFORMATION
  Report Type: 
  Country: None (occurrence: None)
  Receive Date: 20120410
  Receipt Date: 20120403
  Transmission Date: 20120825
  Serious: Yes (Other)
  Sender: FDA-Public Use
  Company Number: DE-NAPPMUNDI-DEU-2012-0008804

PATIENT
  Age: 36 Hour
  Sex: Male
  Weight: 2.99 kg

DRUGS (2)
  1. MORPHINE SULFATE INJ [Suspect]
     Dosage: UNK, Q1H
     Route: 042
  2. MORPHINE SULFATE INJ [Suspect]
     Indication: PAIN
     Dosage: 15 MCG/KG, UNK
     Route: 042

REACTIONS (2)
  - URINARY RETENTION [None]
  - EXTRINSIC ILIAC VEIN COMPRESSION [None]
